FAERS Safety Report 13018496 (Version 2)
Quarter: 2017Q2

REPORT INFORMATION
  Report Type: Spontaneous
  Country: US (occurrence: US)
  Receive Date: 20161212
  Receipt Date: 20170605
  Transmission Date: 20170830
  Serious: Yes (Hospitalization)
  Sender: FDA-Public Use
  Company Number: US-BAYER-2016-233242

PATIENT
  Age: 25 Year
  Sex: Female

DRUGS (1)
  1. MIRENA [Suspect]
     Active Substance: LEVONORGESTREL
     Indication: CONTRACEPTION
     Dosage: 20 MCG/24HR, CONT
     Route: 015
     Dates: start: 20120202, end: 20161012

REACTIONS (8)
  - Uterine perforation [Unknown]
  - Vaginal haemorrhage [None]
  - Ectopic pregnancy with contraceptive device [Unknown]
  - Depression [None]
  - Drug ineffective [None]
  - Device difficult to use [None]
  - Abdominal pain lower [Unknown]
  - Anxiety [None]

NARRATIVE: CASE EVENT DATE: 2015
